FAERS Safety Report 7390186-1 (Version None)
Quarter: 2011Q1

REPORT INFORMATION
  Report Type: 
  Country: None (occurrence: None)
  Receive Date: 20110324
  Receipt Date: 20110315
  Transmission Date: 20110831
  Serious: Yes (Hospitalization)
  Sender: FDA-Public Use
  Company Number: UTC-005739

PATIENT
  Age: 60 Year
  Sex: Female
  Weight: 55.3 kg

DRUGS (2)
  1. REVATIO [Concomitant]
  2. REMODULIN [Suspect]
     Dosage: 33.12 UG/KG (0.023 UG/KG, 1 IN 1 MIN), INTRAVENOUS
     Route: 042

REACTIONS (3)
  - INFECTION [None]
  - CATHETER SITE SWELLING [None]
  - CATHETER SITE ERYTHEMA [None]
